FAERS Safety Report 17352978 (Version 1)
Quarter: 2020Q1

REPORT INFORMATION
  Report Type: Spontaneous
  Country: CZ (occurrence: CZ)
  Receive Date: 20200131
  Receipt Date: 20200131
  Transmission Date: 20200409
  Serious: Yes (Other)
  Sender: FDA-Public Use
  Company Number: CZ-009507513-2001CZE011114

PATIENT

DRUGS (8)
  1. MEDROL [Suspect]
     Active Substance: METHYLPREDNISOLONE
     Dosage: UNK, DAILY
  2. SYMBICORT [Suspect]
     Active Substance: BUDESONIDE\FORMOTEROL FUMARATE DIHYDRATE
     Dosage: 4 DF, 2X/DAY
  3. HELICID (OMEPRAZOLE) [Suspect]
     Active Substance: OMEPRAZOLE
     Dosage: 20 MG, DAILY
  4. MEPOLIZUMAB [Suspect]
     Active Substance: MEPOLIZUMAB
     Dosage: 100 MG, DAILY
     Route: 058
     Dates: start: 20190819
  5. BILASTINE [Suspect]
     Active Substance: BILASTINE
     Dosage: 1 DF, DAILY
  6. MONTELUKAST SODIUM. [Suspect]
     Active Substance: MONTELUKAST SODIUM
     Dosage: UNK, DAILY
  7. SPIRIVA RESPIMAT [Suspect]
     Active Substance: TIOTROPIUM BROMIDE
     Dosage: 2 DF, DAILY (2.5 MICRO-G)
  8. TAFEN [BUDESONIDE] [Suspect]
     Active Substance: BUDESONIDE
     Dosage: UNK DAILY

REACTIONS (1)
  - Transient ischaemic attack [Unknown]

NARRATIVE: CASE EVENT DATE: 20191203
